FAERS Safety Report 8333739-6 (Version None)
Quarter: 2012Q2

REPORT INFORMATION
  Report Type: 
  Country: None (occurrence: None)
  Receive Date: 20120503
  Receipt Date: 20120503
  Transmission Date: 20120825
  Serious: Yes (Death)
  Sender: FDA-Public Use
  Company Number: None

PATIENT
  Sex: Male

DRUGS (2)
  1. CYMBALTA [Suspect]
     Indication: DEPRESSION
     Dosage: |DOSAGETEXT: 30MG||STRENGTH: 30MG||FREQ: QD||ROUTE: ORAL|
     Route: 048
     Dates: start: 20120428, end: 20120501
  2. CYMBALTA [Suspect]
     Indication: ANXIETY
     Dosage: |DOSAGETEXT: 30MG||STRENGTH: 30MG||FREQ: QD||ROUTE: ORAL|
     Route: 048
     Dates: start: 20120428, end: 20120501

REACTIONS (1)
  - ONYCHOMYCOSIS [None]
